FAERS Safety Report 8927037 (Version 5)
Quarter: 2013Q1

REPORT INFORMATION
  Report Type: Report from Study
  Country: US (occurrence: US)
  Receive Date: 20121127
  Receipt Date: 20130121
  Transmission Date: 20140127
  Serious: Yes (Hospitalization, Other)
  Sender: FDA-Public Use
  Company Number: US-ACTELION-A-NJ2012-75222

PATIENT
  Age: 42 Year
  Sex: Female

DRUGS (3)
  1. TRACLEER [Suspect]
     Indication: PULMONARY ARTERIAL HYPERTENSION
     Dosage: UNK
     Route: 048
     Dates: start: 200303
  2. TRACLEER [Suspect]
     Dosage: 125 MG, BID
     Route: 048
  3. COUMADIN [Concomitant]

REACTIONS (7)
  - Bone marrow reticulin fibrosis [Not Recovered/Not Resolved]
  - Colon adenoma [Recovered/Resolved]
  - Biopsy colon [Recovered/Resolved]
  - Post procedural haemorrhage [Recovered/Resolved]
  - Anaemia [Recovering/Resolving]
  - Fatigue [Recovering/Resolving]
  - Thrombocytopenia [Not Recovered/Not Resolved]
